FAERS Safety Report 12935711 (Version 1)
Quarter: 2016Q4

REPORT INFORMATION
  Report Type: Spontaneous
  Country: US (occurrence: US)
  Receive Date: 20161114
  Receipt Date: 20161114
  Transmission Date: 20170207
  Serious: No
  Sender: FDA-Public Use
  Company Number: US-TEVA-704581USA

PATIENT
  Sex: Female
  Weight: 67.19 kg

DRUGS (13)
  1. FLUOXETINE [Suspect]
     Active Substance: FLUOXETINE HYDROCHLORIDE
     Indication: DEPRESSION
  2. CITALOPRAM [Suspect]
     Active Substance: CITALOPRAM HYDROBROMIDE
     Indication: DEPRESSION
     Dosage: 20 MILLIGRAM DAILY;
     Route: 065
     Dates: end: 201608
  3. CYMBALTA [Suspect]
     Active Substance: DULOXETINE HYDROCHLORIDE
     Route: 065
  4. METOPROLOL TARTRATE. [Concomitant]
     Active Substance: METOPROLOL TARTRATE
     Indication: HYPERTENSION
     Dosage: 50 MILLIGRAM DAILY;
     Dates: start: 2015
  5. CITALOPRAM [Suspect]
     Active Substance: CITALOPRAM HYDROBROMIDE
     Dosage: 10 MILLIGRAM DAILY;
     Route: 065
  6. FLUOXETINE [Suspect]
     Active Substance: FLUOXETINE HYDROCHLORIDE
     Indication: PANIC DISORDER
     Dosage: 20 MILLIGRAM DAILY;
     Route: 065
  7. CHANTIX [Suspect]
     Active Substance: VARENICLINE TARTRATE
     Indication: SMOKING CESSATION THERAPY
     Dates: start: 201504, end: 201504
  8. LORAZEPAM. [Suspect]
     Active Substance: LORAZEPAM
     Indication: PANIC DISORDER
     Dosage: 1.5 MILLIGRAM DAILY;
     Route: 065
  9. ZOLOFT [Suspect]
     Active Substance: SERTRALINE HYDROCHLORIDE
     Route: 065
  10. TRAZODONE [Concomitant]
     Active Substance: TRAZODONE HYDROCHLORIDE
     Indication: SLEEP DISORDER
     Dosage: 25 MILLIGRAM DAILY;
  11. QUETIAPINE. [Suspect]
     Active Substance: QUETIAPINE
     Route: 065
  12. MIRTAZAPINE. [Suspect]
     Active Substance: MIRTAZAPINE
     Route: 065
  13. BUSPAR [Suspect]
     Active Substance: BUSPIRONE HYDROCHLORIDE
     Route: 065

REACTIONS (5)
  - Drug effect incomplete [Unknown]
  - Depression [Not Recovered/Not Resolved]
  - Panic reaction [Not Recovered/Not Resolved]
  - Sleep disorder [Recovering/Resolving]
  - Passive smoking [Not Recovered/Not Resolved]

NARRATIVE: CASE EVENT DATE: 2015
